FAERS Safety Report 5872173-5 (Version None)
Quarter: 2008Q3

REPORT INFORMATION
  Report Type: 
  Country: None (occurrence: None)
  Receive Date: 20080905
  Receipt Date: 20080828
  Transmission Date: 20090109
  Serious: Yes (Death)
  Sender: FDA-Public Use
  Company Number: US-JNJFOC-20080806613

PATIENT
  Sex: Female

DRUGS (2)
  1. REOPRO [Suspect]
     Indication: CARDIAC OPERATION
  2. UNSPECIFIED [Concomitant]

REACTIONS (1)
  - PULMONARY ALVEOLAR HAEMORRHAGE [None]
